FAERS Safety Report 18094443 (Version 21)
Quarter: 2025Q1

REPORT INFORMATION
  Report Type: Spontaneous
  Country: CA (occurrence: CA)
  Receive Date: 20200731
  Receipt Date: 20250130
  Transmission Date: 20250409
  Serious: Yes (Other)
  Sender: CELLTRION
  Company Number: CA-CELLTRION INC.-2018CA024958

PATIENT

DRUGS (60)
  1. INFLECTRA [Suspect]
     Active Substance: INFLIXIMAB-DYYB
     Indication: Colitis ulcerative
     Route: 042
     Dates: start: 20181205, end: 20190117
  2. INFLECTRA [Suspect]
     Active Substance: INFLIXIMAB-DYYB
     Indication: Crohn^s disease
     Route: 042
     Dates: start: 20181219
  3. INFLECTRA [Suspect]
     Active Substance: INFLIXIMAB-DYYB
     Route: 042
     Dates: start: 20190116
  4. INFLECTRA [Suspect]
     Active Substance: INFLIXIMAB-DYYB
     Route: 042
     Dates: start: 20190318
  5. INFLECTRA [Suspect]
     Active Substance: INFLIXIMAB-DYYB
     Route: 042
     Dates: start: 20190318, end: 20191218
  6. INFLECTRA [Suspect]
     Active Substance: INFLIXIMAB-DYYB
     Route: 042
     Dates: start: 20190509
  7. INFLECTRA [Suspect]
     Active Substance: INFLIXIMAB-DYYB
     Route: 042
     Dates: start: 20190704
  8. INFLECTRA [Suspect]
     Active Substance: INFLIXIMAB-DYYB
     Route: 042
     Dates: start: 20190829
  9. INFLECTRA [Suspect]
     Active Substance: INFLIXIMAB-DYYB
     Route: 042
     Dates: start: 20191023
  10. INFLECTRA [Suspect]
     Active Substance: INFLIXIMAB-DYYB
     Route: 042
     Dates: start: 20191218
  11. INFLECTRA [Suspect]
     Active Substance: INFLIXIMAB-DYYB
     Route: 042
     Dates: start: 20200211
  12. INFLECTRA [Suspect]
     Active Substance: INFLIXIMAB-DYYB
     Route: 042
     Dates: start: 20200211
  13. INFLECTRA [Suspect]
     Active Substance: INFLIXIMAB-DYYB
     Route: 042
     Dates: start: 20200211
  14. INFLECTRA [Suspect]
     Active Substance: INFLIXIMAB-DYYB
     Route: 042
     Dates: start: 20200211, end: 20201120
  15. INFLECTRA [Suspect]
     Active Substance: INFLIXIMAB-DYYB
     Route: 042
     Dates: start: 20200408
  16. INFLECTRA [Suspect]
     Active Substance: INFLIXIMAB-DYYB
     Route: 042
     Dates: start: 20200604
  17. INFLECTRA [Suspect]
     Active Substance: INFLIXIMAB-DYYB
     Route: 042
     Dates: start: 20200604
  18. INFLECTRA [Suspect]
     Active Substance: INFLIXIMAB-DYYB
     Route: 042
     Dates: start: 20200730
  19. INFLECTRA [Suspect]
     Active Substance: INFLIXIMAB-DYYB
     Route: 042
     Dates: start: 20200924
  20. INFLECTRA [Suspect]
     Active Substance: INFLIXIMAB-DYYB
     Route: 042
     Dates: start: 20201120
  21. INFLECTRA [Suspect]
     Active Substance: INFLIXIMAB-DYYB
     Route: 042
     Dates: start: 20201120
  22. INFLECTRA [Suspect]
     Active Substance: INFLIXIMAB-DYYB
     Route: 042
     Dates: start: 20210115
  23. INFLECTRA [Suspect]
     Active Substance: INFLIXIMAB-DYYB
     Route: 042
     Dates: start: 20210312
  24. INFLECTRA [Suspect]
     Active Substance: INFLIXIMAB-DYYB
     Route: 042
     Dates: start: 20210312
  25. INFLECTRA [Suspect]
     Active Substance: INFLIXIMAB-DYYB
     Route: 042
     Dates: start: 20210507
  26. INFLECTRA [Suspect]
     Active Substance: INFLIXIMAB-DYYB
     Route: 042
     Dates: start: 20210702
  27. INFLECTRA [Suspect]
     Active Substance: INFLIXIMAB-DYYB
     Route: 042
     Dates: start: 20210115
  28. INFLECTRA [Suspect]
     Active Substance: INFLIXIMAB-DYYB
     Route: 042
     Dates: start: 20210827
  29. INFLECTRA [Suspect]
     Active Substance: INFLIXIMAB-DYYB
     Route: 042
     Dates: start: 20211022
  30. INFLECTRA [Suspect]
     Active Substance: INFLIXIMAB-DYYB
     Route: 042
     Dates: start: 20220211
  31. INFLECTRA [Suspect]
     Active Substance: INFLIXIMAB-DYYB
     Route: 042
     Dates: start: 20220406
  32. INFLECTRA [Suspect]
     Active Substance: INFLIXIMAB-DYYB
     Route: 042
     Dates: start: 20220603
  33. INFLECTRA [Suspect]
     Active Substance: INFLIXIMAB-DYYB
     Route: 042
     Dates: start: 20220805
  34. INFLECTRA [Suspect]
     Active Substance: INFLIXIMAB-DYYB
     Route: 042
     Dates: start: 20230120
  35. INFLECTRA [Suspect]
     Active Substance: INFLIXIMAB-DYYB
     Route: 042
     Dates: start: 20230321
  36. INFLECTRA [Suspect]
     Active Substance: INFLIXIMAB-DYYB
     Route: 042
     Dates: start: 20231026
  37. INFLECTRA [Suspect]
     Active Substance: INFLIXIMAB-DYYB
     Route: 042
     Dates: start: 20231222
  38. INFLECTRA [Suspect]
     Active Substance: INFLIXIMAB-DYYB
     Route: 042
     Dates: start: 20240201
  39. INFLECTRA [Suspect]
     Active Substance: INFLIXIMAB-DYYB
     Route: 042
     Dates: start: 20240214
  40. INFLECTRA [Suspect]
     Active Substance: INFLIXIMAB-DYYB
     Route: 042
     Dates: start: 20240415
  41. INFLECTRA [Suspect]
     Active Substance: INFLIXIMAB-DYYB
     Route: 042
     Dates: start: 20240610
  42. INFLECTRA [Suspect]
     Active Substance: INFLIXIMAB-DYYB
     Route: 042
     Dates: start: 20240807
  43. INFLECTRA [Suspect]
     Active Substance: INFLIXIMAB-DYYB
     Route: 042
     Dates: start: 20241002
  44. INFLECTRA [Suspect]
     Active Substance: INFLIXIMAB-DYYB
     Route: 042
     Dates: start: 20241127
  45. INFLECTRA [Suspect]
     Active Substance: INFLIXIMAB-DYYB
     Route: 042
     Dates: start: 20250122
  46. ACETAMINOPHEN [Concomitant]
     Active Substance: ACETAMINOPHEN
     Indication: Premedication
     Route: 048
     Dates: start: 20200730, end: 20200730
  47. ACETAMINOPHEN [Concomitant]
     Active Substance: ACETAMINOPHEN
     Dates: start: 20201120, end: 20201120
  48. ACETAMINOPHEN [Concomitant]
     Active Substance: ACETAMINOPHEN
     Dates: start: 20210507, end: 20210507
  49. ACETAMINOPHEN [Concomitant]
     Active Substance: ACETAMINOPHEN
     Route: 048
     Dates: start: 20210702, end: 20210702
  50. ACETAMINOPHEN [Concomitant]
     Active Substance: ACETAMINOPHEN
     Route: 048
     Dates: start: 20211022, end: 20211022
  51. ACETAMINOPHEN [Concomitant]
     Active Substance: ACETAMINOPHEN
     Dates: start: 20240415, end: 20240415
  52. PREDNISONE [Concomitant]
     Active Substance: PREDNISONE
     Route: 048
  53. HYDROCORTISONE [Concomitant]
     Active Substance: HYDROCORTISONE
     Indication: Premedication
     Route: 042
     Dates: start: 20200730, end: 20200730
  54. HYDROCORTISONE [Concomitant]
     Active Substance: HYDROCORTISONE
     Dates: start: 20201120, end: 20201120
  55. HYDROCORTISONE [Concomitant]
     Active Substance: HYDROCORTISONE
     Dates: start: 20210507, end: 20210507
  56. HYDROCORTISONE [Concomitant]
     Active Substance: HYDROCORTISONE
     Route: 042
     Dates: start: 20210702, end: 20210702
  57. HYDROCORTISONE [Concomitant]
     Active Substance: HYDROCORTISONE
     Dates: start: 20240415, end: 20240415
  58. RIFAMPIN [Concomitant]
     Active Substance: RIFAMPIN
     Indication: Latent tuberculosis
     Route: 048
  59. RIFAMPIN [Concomitant]
     Active Substance: RIFAMPIN
     Indication: Antibiotic prophylaxis
  60. SOLU-CORTEF [Concomitant]
     Active Substance: HYDROCORTISONE SODIUM SUCCINATE
     Indication: Premedication
     Dates: start: 20211022, end: 20211022

REACTIONS (16)
  - Rectal haemorrhage [Unknown]
  - Condition aggravated [Not Recovered/Not Resolved]
  - Therapeutic response shortened [Unknown]
  - Anorectal discomfort [Not Recovered/Not Resolved]
  - Weight decreased [Unknown]
  - Pouchitis [Not Recovered/Not Resolved]
  - Night sweats [Recovered/Resolved]
  - Serum ferritin increased [Unknown]
  - Alanine aminotransferase abnormal [Unknown]
  - Chills [Recovered/Resolved]
  - Viral infection [Recovering/Resolving]
  - Abscess [Unknown]
  - Pyrexia [Recovered/Resolved]
  - Back pain [Unknown]
  - Blood pressure increased [Unknown]
  - Incorrect dose administered [Unknown]

NARRATIVE: CASE EVENT DATE: 20191023
